FAERS Safety Report 9556811 (Version 1)
Quarter: 2013Q3

REPORT INFORMATION
  Report Type: Spontaneous
  Country: US (occurrence: None)
  Receive Date: 20130726
  Receipt Date: 20130726
  Transmission Date: 20140515
  Serious: Yes (Hospitalization, Other)
  Sender: FDA-Public Use
  Company Number: UTC-018222

PATIENT
  Age: 75 Year
  Sex: Female
  Weight: 73 kg

DRUGS (9)
  1. REMODULIN [Suspect]
     Indication: PULMONARY HYPERTENSION
     Dosage: 28.8 UG/KG (0.2 UG/KG, 1 IN 1)INTRAVENOUS
     Route: 042
     Dates: start: 20110613
  2. REMODULIN [Suspect]
     Indication: PULMONARY ARTERIAL HYPERTENSION
     Dosage: 28.8 UG/KG (0.2 UG/KG, 1 IN 1)INTRAVENOUS
     Route: 042
     Dates: start: 20110613
  3. ASPIRIN (ACETYLSALICYLIC ACID) [Concomitant]
  4. TYLENOL (PARACETAMOL) [Concomitant]
  5. LIPITOR (ATORVASTATIN) [Concomitant]
  6. SEROQUEL (QUETIAPINE FUMARATE) [Concomitant]
  7. OXYGEN (OXYGEN) [Concomitant]
  8. PRILOSEC [Concomitant]
  9. ELAVIL (AMITRIPTYLINE HYDROCHLORIDE) [Concomitant]

REACTIONS (5)
  - Pneumonia [None]
  - Fall [None]
  - Back pain [None]
  - Device related infection [None]
  - Asthenia [None]
